FAERS Safety Report 4545722-7 (Version None)
Quarter: 2005Q1

REPORT INFORMATION
  Report Type: 
  Country: None (occurrence: None)
  Receive Date: 20050103
  Receipt Date: 20050103
  Transmission Date: 20050727
  Serious: Yes (Other)
  Sender: FDA-Public Use
  Company Number: None

PATIENT
  Age: 65 Year
  Sex: Male
  Weight: 122.4712 kg

DRUGS (2)
  1. PRAVACHOL [Suspect]
     Indication: BLOOD CHOLESTEROL INCREASED
     Dosage: 1 DAY   ORAL    ORAL
     Route: 048
     Dates: start: 20021102, end: 20021109
  2. PRAVACHOL [Suspect]
     Indication: BLOOD CHOLESTEROL INCREASED
     Dosage: 1 DAY  ORAL   ORAL
     Route: 048
     Dates: start: 20021115, end: 20021120

REACTIONS (2)
  - MUSCLE INJURY [None]
  - MYALGIA [None]
